FAERS Safety Report 17537349 (Version 2)
Quarter: 2020Q1

REPORT INFORMATION
  Report Type: Spontaneous
  Country: JP (occurrence: JP)
  Receive Date: 20200313
  Receipt Date: 20200316
  Transmission Date: 20200409
  Serious: Yes (Hospitalization, Other)
  Sender: FDA-Public Use
  Company Number: NVSJ2020JP003087

PATIENT
  Age: 45 Year
  Sex: Male

DRUGS (10)
  1. MYCOPHENOLATE MOFETIL. [Concomitant]
     Active Substance: MYCOPHENOLATE MOFETIL
     Indication: CHRONIC KIDNEY DISEASE
     Dosage: UNK
     Route: 065
  2. AZACITIDINE. [Concomitant]
     Active Substance: AZACITIDINE
     Indication: CHRONIC KIDNEY DISEASE
     Dosage: UNK
     Route: 065
  3. CYCLOSPORINE. [Suspect]
     Active Substance: CYCLOSPORINE
     Indication: CHRONIC KIDNEY DISEASE
     Dosage: UNK
     Route: 065
  4. PREDNISOLONE. [Concomitant]
     Active Substance: PREDNISOLONE
     Indication: VESICOURETERIC REFLUX
     Dosage: UNK
     Route: 065
  5. MYCOPHENOLATE MOFETIL. [Concomitant]
     Active Substance: MYCOPHENOLATE MOFETIL
     Indication: VESICOURETERIC REFLUX
  6. MIZORIBINE [Concomitant]
     Active Substance: MIZORIBINE
     Indication: CHRONIC KIDNEY DISEASE
     Dosage: UNK
     Route: 065
  7. MIZORIBINE [Concomitant]
     Active Substance: MIZORIBINE
     Indication: VESICOURETERIC REFLUX
  8. CYCLOSPORINE. [Suspect]
     Active Substance: CYCLOSPORINE
     Indication: VESICOURETERIC REFLUX
     Dosage: UNK
     Route: 065
  9. PREDNISOLONE. [Concomitant]
     Active Substance: PREDNISOLONE
     Indication: CHRONIC KIDNEY DISEASE
     Dosage: UNK
     Route: 065
  10. AZACITIDINE. [Concomitant]
     Active Substance: AZACITIDINE
     Indication: VESICOURETERIC REFLUX

REACTIONS (12)
  - Post transplant lymphoproliferative disorder [Recovered/Resolved]
  - Stomatitis [Unknown]
  - Palatal ulcer [Unknown]
  - Decreased appetite [Unknown]
  - Cytomegalovirus infection [Unknown]
  - Systemic candida [Unknown]
  - Diarrhoea [Unknown]
  - Adrenal insufficiency [Recovering/Resolving]
  - Weight decreased [Recovering/Resolving]
  - Endophthalmitis [Unknown]
  - Blood pressure decreased [Recovering/Resolving]
  - Pulmonary cavitation [Unknown]
